FAERS Safety Report 5155024-6 (Version None)
Quarter: 2006Q4

REPORT INFORMATION
  Report Type: 
  Country: None (occurrence: None)
  Receive Date: 20061121
  Receipt Date: 20061116
  Transmission Date: 20070319
  Serious: Yes (Death, Other)
  Sender: FDA-Public Use
  Company Number: PHHO2006TW19426

PATIENT
  Age: 67 Year
  Sex: Male
  Weight: 68 kg

DRUGS (4)
  1. ZOLEDRONATE [Suspect]
     Indication: METASTASES TO BONE
     Dosage: 4MG
     Route: 042
     Dates: start: 20061103, end: 20061103
  2. VITAMIN D [Concomitant]
  3. CALCIUM [Concomitant]
  4. TAXOTERE [Concomitant]

REACTIONS (11)
  - ASTHENIA [None]
  - DRY MOUTH [None]
  - DYSPNOEA [None]
  - LOSS OF CONSCIOUSNESS [None]
  - METABOLIC ACIDOSIS [None]
  - OEDEMA PERIPHERAL [None]
  - ORTHOPNOEA [None]
  - PLEURAL EFFUSION [None]
  - PNEUMONIA [None]
  - SCROTAL SWELLING [None]
  - SEPTIC SHOCK [None]
